FAERS Safety Report 24937893 (Version 2)
Quarter: 2025Q1

REPORT INFORMATION
  Report Type: Spontaneous
  Country: US (occurrence: US)
  Receive Date: 20250206
  Receipt Date: 20250314
  Transmission Date: 20250409
  Serious: Yes (Life-Threatening, Other)
  Sender: FERRING
  Company Number: US-FERRINGPH-2025FE00537

PATIENT

DRUGS (1)
  1. ADSTILADRIN [Suspect]
     Active Substance: NADOFARAGENE FIRADENOVEC-VNCG
     Indication: Product used for unknown indication
     Route: 065

REACTIONS (2)
  - Cardiac arrest [Recovered/Resolved]
  - Seizure [Recovered/Resolved]
